FAERS Safety Report 8826330 (Version 1)
Quarter: 2012Q4

REPORT INFORMATION
  Report Type: 
  Country: US (occurrence: US)
  Receive Date: 20121005
  Receipt Date: 20121005
  Transmission Date: 20130627
  Serious: Yes (Other)
  Sender: FDA-Public Use
  Company Number: US-BRISTOL-MYERS SQUIBB COMPANY-16998841

PATIENT
  Age: 76 Year
  Sex: Female

DRUGS (17)
  1. METFORMIN HCL TABS 500MG [Suspect]
     Dosage: tabs
     Route: 048
  2. LYRICA [Concomitant]
     Dosage: caps
     Route: 048
  3. ULTRAM [Concomitant]
     Dosage: tab
     Route: 048
  4. MECLIZINE [Concomitant]
     Dosage: tab,1per2day,PRN
     Route: 048
  5. VISTARIL [Concomitant]
     Dosage: tab
     Route: 048
  6. ACIPHEX [Concomitant]
     Dosage: ER tab
     Route: 048
  7. LASIX [Concomitant]
     Dosage: tab,1/day,PRN
     Route: 048
  8. DYAZIDE [Concomitant]
     Dosage: 1df=25mg-37.5mg
     Route: 048
  9. CATAPRES [Concomitant]
     Route: 048
  10. TENORMIN [Concomitant]
     Dosage: tab
     Route: 048
  11. RANITIDINE [Concomitant]
     Route: 048
  12. CALCIUM + VITAMIN D [Concomitant]
     Dosage: 1df=100-/400mg tab SIG
     Route: 048
  13. FISH OIL [Concomitant]
  14. ASPIRIN [Concomitant]
  15. PRILOSEC [Concomitant]
     Dosage: enteric coated caps
     Route: 048
  16. NORVASC [Concomitant]
     Route: 048
  17. MULTIVITAMIN [Concomitant]

REACTIONS (3)
  - Osteomyelitis chronic [Unknown]
  - Gastrooesophageal reflux disease [Unknown]
  - Blood pressure increased [Unknown]
